FAERS Safety Report 6657133-9 (Version None)
Quarter: 2010Q1

REPORT INFORMATION
  Report Type: 
  Country: None (occurrence: None)
  Receive Date: 20100330
  Receipt Date: 20100311
  Transmission Date: 20100710
  Serious: Yes (Other)
  Sender: FDA-Public Use
  Company Number: US-ELI_LILLY_AND_COMPANY-US201003004783

PATIENT
  Sex: Male
  Weight: 140.59 kg

DRUGS (20)
  1. EFFIENT [Suspect]
     Dosage: 60 MG, UNK
     Route: 065
     Dates: start: 20100308, end: 20100308
  2. EFFIENT [Suspect]
     Dosage: 10 MG, DAILY (1/D)
     Route: 065
     Dates: start: 20100309, end: 20100310
  3. LYRICA [Concomitant]
  4. NPH INSULIN [Concomitant]
     Dosage: 80 U, 2/D
  5. INSULIN ASPART [Concomitant]
     Dosage: 80 U, 3/D
     Route: 058
  6. MULTI-VITAMIN [Concomitant]
     Dosage: UNK, DAILY (1/D)
  7. ASPIRIN [Concomitant]
     Dosage: UNK, DAILY (1/D)
  8. TRAMADOL HCL [Concomitant]
     Dosage: UNK, AS NEEDED
  9. BACLOFEN [Concomitant]
     Dosage: 10 MG, 3/D
  10. GEMFIBROZIL [Concomitant]
     Dosage: 600 MG, 2/D
  11. ZOCOR [Concomitant]
     Dosage: 80 MG, EACH EVENING
  12. GLUCOPHAGE [Concomitant]
     Dosage: 1 G, 2/D
  13. ZESTRIL [Concomitant]
     Dosage: 40 MG, DAILY (1/D)
  14. TERAZOSIN HCL [Concomitant]
     Dosage: 5 MG, EACH EVENING
  15. PREGABALIN [Concomitant]
     Dosage: 150 MG, 3/D
  16. INTEGRILIN [Concomitant]
     Dates: start: 20100308, end: 20100308
  17. HEPARIN [Concomitant]
     Route: 042
     Dates: start: 20100308, end: 20100308
  18. VERSED [Concomitant]
     Dosage: 3 MG, UNK
     Route: 042
     Dates: start: 20100308, end: 20100308
  19. FENTANYL [Concomitant]
     Dosage: 200 UG, UNK
     Dates: start: 20100308, end: 20100308
  20. XYLOCAINE [Concomitant]
     Dates: start: 20100308, end: 20100308

REACTIONS (5)
  - ABNORMAL BEHAVIOUR [None]
  - HYPOTENSION [None]
  - NEPHROSCLEROSIS [None]
  - RENAL FAILURE ACUTE [None]
  - RENAL TUBULAR NECROSIS [None]
